FAERS Safety Report 6930588-8 (Version None)
Quarter: 2010Q3

REPORT INFORMATION
  Report Type: 
  Country: None (occurrence: None)
  Receive Date: 20100818
  Receipt Date: 20100806
  Transmission Date: 20110219
  Serious: Yes (Other)
  Sender: FDA-Public Use
  Company Number: US-PFIZER INC-2009196143

PATIENT
  Sex: Female
  Weight: 62.585 kg

DRUGS (9)
  1. NEURONTIN [Suspect]
     Indication: PERIPHERAL COLDNESS
     Dosage: 300 MG, 3X/DAY
     Route: 048
     Dates: start: 20080201, end: 20080401
  2. NEURONTIN [Suspect]
     Indication: NEURALGIA
  3. LYRICA [Suspect]
     Indication: PERIPHERAL COLDNESS
     Dosage: 75 MG, 2X/DAY
     Dates: start: 20090301
  4. GABAPENTIN [Suspect]
     Dosage: UNK
  5. HYDROCHLOROTHIAZIDE [Concomitant]
     Dosage: 25 MG, UNK
  6. SYNTHROID [Concomitant]
     Dosage: 100 MCG
  7. IBUPROFEN [Concomitant]
     Dosage: ONE A DAY
  8. FISH OIL [Concomitant]
     Dosage: UNK
  9. GLUCOSAMINE [Concomitant]
     Dosage: UNK

REACTIONS (6)
  - DRUG INEFFECTIVE [None]
  - FEELING ABNORMAL [None]
  - HYPERTENSION [None]
  - OEDEMA PERIPHERAL [None]
  - PAIN [None]
  - PERIPHERAL COLDNESS [None]
